FAERS Safety Report 19674977 (Version 3)
Quarter: 2021Q4

REPORT INFORMATION
  Report Type: Spontaneous
  Country: JP (occurrence: JP)
  Receive Date: 20210809
  Receipt Date: 20211006
  Transmission Date: 20220303
  Serious: Yes (Hospitalization)
  Sender: FDA-Public Use
  Company Number: JP-ABBVIE-21K-087-3978694-00

PATIENT
  Age: 80 Year
  Sex: Female

DRUGS (8)
  1. VENCLEXTA [Suspect]
     Active Substance: VENETOCLAX
     Indication: Acute myeloid leukaemia
     Route: 048
     Dates: start: 20210610, end: 20210622
  2. VENCLEXTA [Suspect]
     Active Substance: VENETOCLAX
     Route: 048
     Dates: start: 20210706, end: 20210723
  3. VALSARTAN [Concomitant]
     Active Substance: VALSARTAN
     Indication: Hypertension
     Route: 048
  4. MIRABEGRON [Concomitant]
     Active Substance: MIRABEGRON
     Indication: Pollakiuria
     Route: 048
  5. SITAGLIPTIN PHOSPHATE [Concomitant]
     Active Substance: SITAGLIPTIN PHOSPHATE
     Indication: Diabetes mellitus
     Route: 048
  6. HERBALS [Concomitant]
     Active Substance: HERBALS
     Indication: Dementia
     Route: 048
  7. AZACITIDINE [Concomitant]
     Active Substance: AZACITIDINE
     Indication: Acute myeloid leukaemia
     Route: 058
     Dates: start: 20210610, end: 20210616
  8. AZACITIDINE [Concomitant]
     Active Substance: AZACITIDINE
     Dosage: DAILY DOSE: 75 MG/M2
     Route: 058
     Dates: start: 20210708, end: 20210714

REACTIONS (7)
  - Tumour associated fever [Recovered/Resolved]
  - Febrile neutropenia [Recovered/Resolved]
  - Blast cell count increased [Recovered/Resolved]
  - Blast cell count increased [Unknown]
  - Hypophagia [Unknown]
  - Bacterial test positive [Unknown]
  - Full blood count abnormal [Unknown]

NARRATIVE: CASE EVENT DATE: 20210101
